FAERS Safety Report 7630862-6 (Version None)
Quarter: 2011Q3

REPORT INFORMATION
  Report Type: 
  Country: None (occurrence: None)
  Receive Date: 20110723
  Receipt Date: 20110721
  Transmission Date: 20111222
  Serious: Yes (Other)
  Sender: FDA-Public Use
  Company Number: IN-ABBOTT-11P-078-0835370-00

PATIENT
  Age: 60 Year
  Sex: Female
  Weight: 60 kg

DRUGS (13)
  1. METOPROLOL TARTRATE [Concomitant]
     Indication: HYPERTENSION
  2. DIAZEPAM [Concomitant]
     Indication: PRODUCT USED FOR UNKNOWN INDICATION
     Dosage: NIGHT BEFORE SURGERY
     Route: 048
  3. OXYGEN [Concomitant]
     Indication: MAINTENANCE OF ANAESTHESIA
     Dosage: WITH SEVOFLURANE
  4. DIAZEPAM [Concomitant]
     Dosage: 60 MINUTES BEFORE SURGERY
     Route: 048
  5. AMLODIPINE [Concomitant]
     Indication: HYPERTENSION
  6. OXYGEN [Concomitant]
  7. NITROUS OXIDE [Concomitant]
     Indication: MAINTENANCE OF ANAESTHESIA
  8. MORPHINE [Concomitant]
     Route: 042
  9. SEVOFLURANE [Suspect]
  10. SEVOFLURANE [Suspect]
  11. MORPHINE [Concomitant]
     Indication: PRODUCT USED FOR UNKNOWN INDICATION
     Dosage: IN OPERATING ROOM
     Route: 030
  12. SUXAMETHONIUM [Concomitant]
     Indication: PRODUCT USED FOR UNKNOWN INDICATION
  13. SEVOFLURANE [Suspect]
     Indication: MAINTENANCE OF ANAESTHESIA

REACTIONS (1)
  - ATRIOVENTRICULAR DISSOCIATION [None]
